FAERS Safety Report 17680640 (Version 26)
Quarter: 2025Q2

REPORT INFORMATION
  Report Type: Report from Study
  Country: US (occurrence: US)
  Receive Date: 20200417
  Receipt Date: 20250502
  Transmission Date: 20250717
  Serious: Yes (Hospitalization, Other)
  Sender: TAKEDA
  Company Number: US-SHIRE-US202013753

PATIENT
  Sex: Female
  Weight: 54 kg

DRUGS (45)
  1. HUMAN IMMUNOGLOBULIN G [Suspect]
     Active Substance: HUMAN IMMUNOGLOBULIN G
     Indication: Immunodeficiency common variable
     Dosage: 8 GRAM, 1/WEEK
     Dates: start: 20150123
  2. HUMAN IMMUNOGLOBULIN G [Suspect]
     Active Substance: HUMAN IMMUNOGLOBULIN G
     Indication: Primary immunodeficiency syndrome
     Dosage: 8 GRAM, 1/WEEK
     Dates: start: 20151123
  3. HUMAN IMMUNOGLOBULIN G [Suspect]
     Active Substance: HUMAN IMMUNOGLOBULIN G
  4. HUMAN IMMUNOGLOBULIN G [Suspect]
     Active Substance: HUMAN IMMUNOGLOBULIN G
     Dosage: 8 GRAM, 1/WEEK
     Dates: start: 20160222
  5. DIPHENHYDRAMINE [Concomitant]
     Active Substance: DIPHENHYDRAMINE
  6. PULMICORT FLEXHALER [Concomitant]
     Active Substance: BUDESONIDE
  7. ALBUTEROL [Concomitant]
     Active Substance: ALBUTEROL
  8. LYRICA [Concomitant]
     Active Substance: PREGABALIN
  9. IPRATROPIUM [Concomitant]
     Active Substance: IPRATROPIUM
  10. RANITIDINE [Concomitant]
     Active Substance: RANITIDINE
  11. NAPROSYN [Concomitant]
     Active Substance: NAPROXEN
  12. ACYCLOVIR [Concomitant]
     Active Substance: ACYCLOVIR
  13. EPINEPHRINE [Concomitant]
     Active Substance: EPINEPHRINE
  14. HYDROXYCHLOROQUINE [Concomitant]
     Active Substance: HYDROXYCHLOROQUINE
  15. OXYCODONE AND ASPIRIN [Concomitant]
     Active Substance: ASPIRIN\OXYCODONE HYDROCHLORIDE
  16. ACETAMINOPHEN [Concomitant]
     Active Substance: ACETAMINOPHEN
  17. ATORVASTATIN [Concomitant]
     Active Substance: ATORVASTATIN
  18. LEVOTHYROXINE [Concomitant]
     Active Substance: LEVOTHYROXINE
  19. SPIRIVA [Concomitant]
     Active Substance: TIOTROPIUM BROMIDE MONOHYDRATE
  20. VITAMIN D2 [Concomitant]
     Active Substance: ERGOCALCIFEROL
  21. LIDOCAINE\PRILOCAINE [Concomitant]
     Active Substance: LIDOCAINE\PRILOCAINE
  22. IPRATROPIUM BROMIDE [Concomitant]
     Active Substance: IPRATROPIUM BROMIDE
  23. PREDNISONE [Concomitant]
     Active Substance: PREDNISONE
  24. DILTIAZEM [Concomitant]
     Active Substance: DILTIAZEM
  25. NEXIUM [Concomitant]
     Active Substance: ESOMEPRAZOLE MAGNESIUM
  26. DULOXETINE [Concomitant]
     Active Substance: DULOXETINE
  27. MYCOPHENOLATE MOFETIL [Concomitant]
     Active Substance: MYCOPHENOLATE MOFETIL
  28. OPSUMIT [Concomitant]
     Active Substance: MACITENTAN
  29. Lmx [Concomitant]
  30. TADALAFIL [Concomitant]
     Active Substance: TADALAFIL
  31. BIOTENE NOS [Concomitant]
     Active Substance: UNSPECIFIED INGREDIENT
  32. AMITRIPTYLINE [Concomitant]
     Active Substance: AMITRIPTYLINE
  33. ADCIRCA [Concomitant]
     Active Substance: TADALAFIL
  34. DULOXETINE HYDROCHLORIDE [Concomitant]
     Active Substance: DULOXETINE HYDROCHLORIDE
  35. ALBUTEROL SULFATE [Concomitant]
     Active Substance: ALBUTEROL SULFATE
  36. AMITRIPTYLINE HYDROCHLORIDE [Concomitant]
     Active Substance: AMITRIPTYLINE HYDROCHLORIDE
  37. ATORVASTATIN CALCIUM [Concomitant]
     Active Substance: ATORVASTATIN CALCIUM
  38. ALBUTEROL SULFATE\IPRATROPIUM BROMIDE [Concomitant]
     Active Substance: ALBUTEROL SULFATE\IPRATROPIUM BROMIDE
  39. HYDROXYCHLOROQUINE SULFATE [Concomitant]
     Active Substance: HYDROXYCHLOROQUINE SULFATE
  40. LEVOTHYROXINE SODIUM [Concomitant]
     Active Substance: LEVOTHYROXINE SODIUM
  41. OXYCODONE AND ACETAMINOPHEN [Concomitant]
     Active Substance: ACETAMINOPHEN\OXYCODONE HYDROCHLORIDE
  42. VITAMIN D [Concomitant]
     Active Substance: VITAMIN D NOS
  43. ADCIRCA [Concomitant]
     Active Substance: TADALAFIL
  44. DIPHENHYDRAMINE HYDROCHLORIDE [Concomitant]
     Active Substance: DIPHENHYDRAMINE HYDROCHLORIDE
  45. DILTIAZEM HYDROCHLORIDE [Concomitant]
     Active Substance: DILTIAZEM HYDROCHLORIDE

REACTIONS (37)
  - Gastroenteritis [Unknown]
  - Oropharyngeal discomfort [Unknown]
  - Gastrointestinal haemorrhage [Unknown]
  - Pneumonia [Unknown]
  - Vomiting [Unknown]
  - Pyrexia [Unknown]
  - Diarrhoea [Unknown]
  - Dizziness [Unknown]
  - Gastrointestinal polyp haemorrhage [Unknown]
  - Upper limb fracture [Unknown]
  - Haematuria [Unknown]
  - Weight decreased [Unknown]
  - Urinary tract infection [Unknown]
  - Sinus disorder [Unknown]
  - Nasopharyngitis [Unknown]
  - Cardiomegaly [Unknown]
  - Throat irritation [Unknown]
  - Insurance issue [Unknown]
  - Neck pain [Unknown]
  - Viral infection [Unknown]
  - Product use issue [Unknown]
  - Product dose omission issue [Unknown]
  - Upper respiratory tract infection [Unknown]
  - Asthenia [Not Recovered/Not Resolved]
  - Malaise [Unknown]
  - Muscle spasms [Unknown]
  - Dyspnoea [Unknown]
  - Cough [Unknown]
  - Infusion site pain [Unknown]
  - Nausea [Unknown]
  - Fatigue [Unknown]
  - Headache [Unknown]
  - Arthralgia [Unknown]
  - Fall [Unknown]
  - Multiple allergies [Unknown]
  - Rhinorrhoea [Unknown]
  - Balance disorder [Unknown]
